FAERS Safety Report 23950669 (Version 1)
Quarter: 2024Q2

REPORT INFORMATION
  Report Type: Report from Study
  Country: AU (occurrence: AU)
  Receive Date: 20240607
  Receipt Date: 20240607
  Transmission Date: 20240717
  Serious: No
  Sender: FDA-Public Use
  Company Number: AU-SPRINGWORKS THERAPEUTICS-SW-001578

PATIENT
  Age: 65 Year
  Sex: Female

DRUGS (2)
  1. NIROGACESTAT [Suspect]
     Active Substance: NIROGACESTAT
     Indication: Desmoid tumour
     Dosage: 100 MILLIGRAM MORNING AND 150 MG NIGHT
     Dates: start: 20231108
  2. NIROGACESTAT [Suspect]
     Active Substance: NIROGACESTAT
     Dosage: 100 MILLIGRAM MORNING AND 150 MG NIGHT
     Dates: start: 20231218

REACTIONS (2)
  - Headache [Recovered/Resolved]
  - Nausea [Recovered/Resolved]

NARRATIVE: CASE EVENT DATE: 20231115
